FAERS Safety Report 5150837-9 (Version None)
Quarter: 2006Q4

REPORT INFORMATION
  Report Type: 
  Country: None (occurrence: None)
  Receive Date: 20061114
  Receipt Date: 20061004
  Transmission Date: 20070319
  Serious: Yes (Death, Hospitalization, Other)
  Sender: FDA-Public Use
  Company Number: JP-ELI_LILLY_AND_COMPANY-JP200610001080

PATIENT
  Age: 69 Year
  Sex: Male
  Weight: 43 kg

DRUGS (5)
  1. GLUCOBAY                                /GFR/ [Concomitant]
     Indication: DIABETES MELLITUS
     Dosage: 6 TABLETS, DAILY (1/D)
     Route: 048
     Dates: start: 20050525
  2. OMEPRAL [Concomitant]
     Indication: REFLUX OESOPHAGITIS
     Dosage: 1 TABLET, DAILY (1/D)
     Route: 048
     Dates: start: 20050525
  3. NOVORAPID                               /DEN/ [Concomitant]
     Indication: DIABETES MELLITUS
     Dosage: 18 UNITS, UNK
     Route: 058
     Dates: start: 20050525
  4. GEMZAR [Suspect]
     Indication: PANCREATIC CARCINOMA STAGE IV
     Dosage: 1400 MG, OTHER
     Route: 042
     Dates: start: 20050615, end: 20050101
  5. GEMZAR [Suspect]
     Dosage: 1400 MG, OTHER
     Route: 042
     Dates: start: 20051130, end: 20060104

REACTIONS (7)
  - CANCER PAIN [None]
  - CEREBRAL INFARCTION [None]
  - CHOLANGITIS ACUTE [None]
  - CONSTIPATION [None]
  - MALIGNANT NEOPLASM PROGRESSION [None]
  - TROUSSEAU'S SYNDROME [None]
  - WHITE BLOOD CELL COUNT DECREASED [None]
